FAERS Safety Report 7640728-3 (Version None)
Quarter: 2011Q3

REPORT INFORMATION
  Report Type: 
  Country: None (occurrence: None)
  Receive Date: 20110728
  Receipt Date: 20110718
  Transmission Date: 20111222
  Serious: Yes (Hospitalization, Other)
  Sender: FDA-Public Use
  Company Number: AR-AMGEN-ARGSP2011009326

PATIENT
  Age: 53 Year
  Sex: Female
  Weight: 90 kg

DRUGS (7)
  1. ENALAPRIL MALEATE [Concomitant]
     Dosage: UNK
     Route: 048
  2. CLONAZEPAM [Concomitant]
     Dosage: UNK
     Route: 048
  3. OMEPRAZOLE [Concomitant]
     Dosage: UNK
     Route: 048
  4. ENBREL [Suspect]
     Indication: RHEUMATOID ARTHRITIS
     Dosage: 50 MG, WEEKLY
     Route: 058
     Dates: start: 20090306, end: 20101101
  5. ATENOLOL [Concomitant]
     Dosage: UNK
     Route: 048
  6. LEVOTHYROXINE SODIUM [Concomitant]
     Dosage: UNK
     Route: 048
  7. SERTRALINE HYDROCHLORIDE [Concomitant]
     Dosage: UNK
     Route: 048

REACTIONS (6)
  - BONE INFARCTION [None]
  - JOINT FLUID DRAINAGE [None]
  - OEDEMA PERIPHERAL [None]
  - OSTEOMYELITIS [None]
  - ARTHRITIS [None]
  - CELLULITIS [None]
